FAERS Safety Report 6733269-9 (Version None)
Quarter: 2010Q2

REPORT INFORMATION
  Report Type: 
  Country: None (occurrence: None)
  Receive Date: 20100520
  Receipt Date: 20100507
  Transmission Date: 20101027
  Serious: No
  Sender: FDA-Public Use
  Company Number: US-JNJFOC-20100502900

PATIENT
  Sex: Female
  Weight: 81.65 kg

DRUGS (3)
  1. FENTANYL CITRATE [Suspect]
     Indication: PAIN
     Route: 062
     Dates: start: 20080101, end: 20100501
  2. FENTANYL CITRATE [Suspect]
     Route: 062
     Dates: start: 20100501
  3. UNSPECIFED MEDICATIONS [Concomitant]
     Route: 065

REACTIONS (3)
  - APPLICATION SITE EROSION [None]
  - PRODUCT ADHESION ISSUE [None]
  - WRONG TECHNIQUE IN DRUG USAGE PROCESS [None]
